FAERS Safety Report 9921401 (Version 2)
Quarter: 2014Q2

REPORT INFORMATION
  Report Type: Spontaneous
  Country: FR (occurrence: FR)
  Receive Date: 20140225
  Receipt Date: 20140609
  Transmission Date: 20141212
  Serious: Yes (Hospitalization)
  Sender: FDA-Public Use
  Company Number: FR-JNJFOC-20140212595

PATIENT
  Age: 30 Year
  Sex: Female

DRUGS (10)
  1. TOPALGIC L P [Suspect]
     Indication: PAIN
     Route: 048
     Dates: start: 20140118, end: 20140118
  2. TOPALGIC L P [Suspect]
     Indication: PAIN
     Route: 048
     Dates: start: 20140121, end: 20140121
  3. REMICADE [Suspect]
     Indication: ANKYLOSING SPONDYLITIS
     Route: 042
     Dates: start: 20131122, end: 20131122
  4. REMICADE [Suspect]
     Indication: ANKYLOSING SPONDYLITIS
     Route: 042
     Dates: start: 20131011, end: 20131011
  5. REMICADE [Suspect]
     Indication: ANKYLOSING SPONDYLITIS
     Route: 042
     Dates: start: 20131025, end: 20131025
  6. BI-PROFENID [Concomitant]
     Indication: PRODUCT USED FOR UNKNOWN INDICATION
     Route: 065
     Dates: start: 20131122
  7. APRANAX [Concomitant]
     Indication: PAIN
     Route: 065
     Dates: end: 20140117
  8. INEXIUM [Concomitant]
     Indication: PRODUCT USED FOR UNKNOWN INDICATION
     Route: 065
     Dates: start: 20131122
  9. LAMALINE [Concomitant]
     Indication: PAIN
     Route: 065
     Dates: start: 20131122
  10. LAMALINE [Concomitant]
     Indication: PAIN
     Route: 065
     Dates: end: 20140117

REACTIONS (2)
  - Thrombocytopenia [Recovered/Resolved]
  - Hepatocellular injury [Recovered/Resolved]
